FAERS Safety Report 10309228 (Version 3)
Quarter: 2014Q3

REPORT INFORMATION
  Report Type: Spontaneous
  Country: US (occurrence: None)
  Receive Date: 20140714
  Receipt Date: 20140728
  Transmission Date: 20150326
  Serious: Yes (Hospitalization)
  Sender: FDA-Public Use
  Company Number: UNT-2014-003249

PATIENT
  Age: 12 Year
  Sex: Male
  Weight: 62 kg

DRUGS (3)
  1. REVATIO [Concomitant]
     Active Substance: SILDENAFIL CITRATE
  2. REMODULIN [Suspect]
     Active Substance: TREPROSTINIL
     Indication: COR PULMONALE CHRONIC
     Route: 041
     Dates: start: 20110522
  3. TRACLEER [Concomitant]
     Active Substance: BOSENTAN\BOSENTAN MONOHYDRATE

REACTIONS (5)
  - Pneumoperitoneum [None]
  - Pulmonary hypertension [None]
  - Device related infection [None]
  - Bacteraemia [None]
  - Sepsis [None]

NARRATIVE: CASE EVENT DATE: 20140613
